FAERS Safety Report 10232849 (Version 1)
Quarter: 2014Q2

REPORT INFORMATION
  Report Type: Spontaneous
  Country: US (occurrence: US)
  Receive Date: 20140612
  Receipt Date: 20140612
  Transmission Date: 20141212
  Serious: No
  Sender: FDA-Public Use
  Company Number: US-009507513-1404USA003393

PATIENT
  Sex: Female

DRUGS (1)
  1. COMPLEX 15 FACE CREAM [Suspect]
     Indication: PRODUCT USED FOR UNKNOWN INDICATION
     Dosage: UNK, UNKNOWN
     Route: 061
     Dates: start: 20140311

REACTIONS (2)
  - Eye irritation [Not Recovered/Not Resolved]
  - Hypersensitivity [Unknown]
